FAERS Safety Report 11839060 (Version 1)
Quarter: 2015Q4

REPORT INFORMATION
  Report Type: Spontaneous
  Country: US (occurrence: US)
  Receive Date: 20151216
  Receipt Date: 20151216
  Transmission Date: 20160305
  Serious: Yes (Hospitalization, Other)
  Sender: FDA-Public Use
  Company Number: US-ZYDUS-009686

PATIENT
  Age: 38 Year
  Sex: Male

DRUGS (3)
  1. NO DRUG NAME [Concomitant]
     Indication: PRODUCT USED FOR UNKNOWN INDICATION
  2. TOPIRAMATE. [Suspect]
     Active Substance: TOPIRAMATE
     Indication: GENERALISED TONIC-CLONIC SEIZURE
     Route: 065
  3. LEVETIRACETAM. [Suspect]
     Active Substance: LEVETIRACETAM
     Indication: GENERALISED TONIC-CLONIC SEIZURE
     Dosage: 750MG TWICE DAILY INITIALLY THEN INCREASED TO 1000MG THREE TIMES DAILY
     Route: 065

REACTIONS (3)
  - Drug ineffective [Unknown]
  - Bradycardia [Recovered/Resolved]
  - Hypothermia [Recovered/Resolved]
